FAERS Safety Report 8000496-2 (Version None)
Quarter: 2011Q4

REPORT INFORMATION
  Report Type: 
  Country: None (occurrence: None)
  Receive Date: 20111222
  Receipt Date: 20111213
  Transmission Date: 20120403
  Serious: Yes (Hospitalization, Other)
  Sender: FDA-Public Use
  Company Number: NL-JNJFOC-20111206029

PATIENT
  Sex: Male
  Weight: 112 kg

DRUGS (12)
  1. NEUPOGEN [Suspect]
     Indication: DIFFUSE LARGE B-CELL LYMPHOMA
     Route: 042
     Dates: start: 20110804
  2. NEUPOGEN [Suspect]
     Route: 042
     Dates: start: 20110824
  3. DOXORUBICIN HCL [Suspect]
     Route: 042
     Dates: start: 20110825, end: 20110825
  4. PREDNISONE [Suspect]
     Indication: DIFFUSE LARGE B-CELL LYMPHOMA
     Route: 048
     Dates: start: 20110803
  5. RITUXIMAB [Suspect]
     Indication: DIFFUSE LARGE B-CELL LYMPHOMA
     Route: 042
     Dates: start: 20110824, end: 20110830
  6. CYCLOPHOSPHAMIDE [Suspect]
     Route: 042
     Dates: start: 20110803
  7. VINCRISTINE [Suspect]
     Indication: DIFFUSE LARGE B-CELL LYMPHOMA
     Route: 042
     Dates: start: 20110803
  8. VINCRISTINE [Suspect]
     Route: 042
     Dates: start: 20110824
  9. DOXORUBICIN HCL [Suspect]
     Indication: DIFFUSE LARGE B-CELL LYMPHOMA
     Route: 042
     Dates: start: 20110803
  10. RITUXIMAB [Suspect]
     Dosage: 800 (UNIT UNSPECIFIED)
     Route: 042
     Dates: start: 20110803
  11. CYCLOPHOSPHAMIDE [Suspect]
     Indication: DIFFUSE LARGE B-CELL LYMPHOMA
     Route: 042
     Dates: start: 20110824, end: 20110824
  12. PREDNISONE [Suspect]
     Route: 042
     Dates: start: 20110824, end: 20110829

REACTIONS (3)
  - WHITE BLOOD CELL COUNT DECREASED [None]
  - CULTURE POSITIVE [None]
  - FEBRILE NEUTROPENIA [None]
